FAERS Safety Report 5477732-X (Version None)
Quarter: 2007Q3

REPORT INFORMATION
  Report Type: 
  Country: None (occurrence: None)
  Receive Date: 20070910
  Receipt Date: 20070910
  Transmission Date: 20080115
  Serious: Yes (Life-Threatening)
  Sender: FDA-Public Use
  Company Number: None

PATIENT
  Age: 32 Year
  Sex: Female
  Weight: 70 kg

DRUGS (2)
  1. BACITRACIN [Suspect]
     Indication: SURGERY
     Dosage: SOAKED PAD ONCE TOP
     Route: 061
     Dates: start: 20070412, end: 20070412
  2. MARCAINE [Suspect]
     Indication: SURGERY
     Dosage: SOAKED PAD ONCE TOP
     Route: 061
     Dates: start: 20070412, end: 20070412

REACTIONS (1)
  - ANAPHYLACTIC REACTION [None]
